FAERS Safety Report 17404334 (Version 1)
Quarter: 2020Q1

REPORT INFORMATION
  Report Type: Spontaneous
  Country: US (occurrence: US)
  Receive Date: 20200211
  Receipt Date: 20200211
  Transmission Date: 20200409
  Serious: Yes (Other)
  Sender: FDA-Public Use
  Company Number: US-PFIZER INC-2020053201

PATIENT
  Age: 23 Year
  Sex: Female

DRUGS (3)
  1. DEPO-PROVERA [Suspect]
     Active Substance: MEDROXYPROGESTERONE ACETATE
     Indication: MENSTRUATION IRREGULAR
     Dosage: UNK, EVERY 3 MONTHS
     Route: 058
     Dates: start: 2016
  2. DEPO-PROVERA [Suspect]
     Active Substance: MEDROXYPROGESTERONE ACETATE
     Indication: CONTRACEPTION
  3. PROZAC [Concomitant]
     Active Substance: FLUOXETINE HYDROCHLORIDE
     Indication: BIPOLAR DISORDER
     Dosage: 10 MG, 2X/DAY
     Route: 048

REACTIONS (8)
  - Injection site indentation [Unknown]
  - Injection site macule [Not Recovered/Not Resolved]
  - Injection site mass [Unknown]
  - Depression [Not Recovered/Not Resolved]
  - Body height decreased [Unknown]
  - Scoliosis [Unknown]
  - Dental caries [Not Recovered/Not Resolved]
  - Calcium deficiency [Not Recovered/Not Resolved]

NARRATIVE: CASE EVENT DATE: 2017
